FAERS Safety Report 11809813 (Version 6)
Quarter: 2016Q1

REPORT INFORMATION
  Report Type: Report from Study
  Country: US (occurrence: US)
  Receive Date: 20151208
  Receipt Date: 20160324
  Transmission Date: 20160525
  Serious: No
  Sender: FDA-Public Use
  Company Number: US-AMGEN-USASL2015129100

PATIENT
  Age: 58 Year
  Sex: Male

DRUGS (5)
  1. MELOXICAM. [Concomitant]
     Active Substance: MELOXICAM
     Dosage: UNK
  2. ENBREL [Suspect]
     Active Substance: ETANERCEPT
     Indication: RHEUMATOID ARTHRITIS
     Dosage: 50 MG, QWK
     Route: 058
     Dates: start: 20151016
  3. AIRBORNE [Concomitant]
     Active Substance: HERBALS\MINERALS\VITAMINS
     Dosage: UNK
  4. VITAMIN C [Concomitant]
     Active Substance: ASCORBIC ACID
     Dosage: UNK
  5. PREDNISONE. [Concomitant]
     Active Substance: PREDNISONE
     Indication: PERIPHERAL SWELLING
     Dosage: UNK
     Dates: end: 201512

REACTIONS (29)
  - Diarrhoea [Unknown]
  - Wheezing [Unknown]
  - Skin lesion [Unknown]
  - Rash [Unknown]
  - Muscle spasms [Unknown]
  - Abdominal pain upper [Unknown]
  - Fatigue [Unknown]
  - Musculoskeletal pain [Unknown]
  - Nasopharyngitis [Recovered/Resolved]
  - Injection site haemorrhage [Unknown]
  - Lethargy [Unknown]
  - Sneezing [Unknown]
  - Carpal tunnel syndrome [Unknown]
  - Sputum discoloured [Unknown]
  - Skin discolouration [Unknown]
  - Chest pain [Unknown]
  - Injection site bruising [Unknown]
  - Lacrimation increased [Unknown]
  - Cough [Recovered/Resolved]
  - Joint swelling [Unknown]
  - Malaise [Unknown]
  - Nasal congestion [Unknown]
  - Dyspnoea [Unknown]
  - Productive cough [Unknown]
  - Acne [Unknown]
  - Peripheral swelling [Unknown]
  - Pain [Unknown]
  - Influenza like illness [Unknown]
  - Upper respiratory tract infection [Unknown]

NARRATIVE: CASE EVENT DATE: 2015
